FAERS Safety Report 24006155 (Version 1)
Quarter: 2024Q2

REPORT INFORMATION
  Report Type: Spontaneous
  Country: CA (occurrence: CA)
  Receive Date: 20240624
  Receipt Date: 20240624
  Transmission Date: 20240717
  Serious: Yes (Other)
  Sender: FDA-Public Use
  Company Number: CA-ANIPHARMA-2024-CA-003011

PATIENT
  Age: 69 Year
  Sex: Female

DRUGS (4)
  1. CANDESARTAN [Suspect]
     Active Substance: CANDESARTAN
     Indication: Product used for unknown indication
  2. SYMBICORT [Suspect]
     Active Substance: BUDESONIDE\FORMOTEROL FUMARATE DIHYDRATE
     Route: 055
  3. AZD-1222 [Suspect]
     Active Substance: AZD-1222
     Route: 030
  4. TOZINAMERAN [Suspect]
     Active Substance: TOZINAMERAN

REACTIONS (2)
  - COVID-19 [Unknown]
  - Vaccination failure [Unknown]
